FAERS Safety Report 20449154 (Version 1)
Quarter: 2022Q1

REPORT INFORMATION
  Report Type: Spontaneous
  Country: US (occurrence: None)
  Receive Date: 20220208
  Receipt Date: 20220208
  Transmission Date: 20220423
  Serious: No
  Sender: FDA-Public Use
  Company Number: None

PATIENT
  Sex: Female

DRUGS (4)
  1. VERZENIO [Suspect]
     Active Substance: ABEMACICLIB
     Indication: Metastases to breast
     Dosage: FREQUENCY : DAILY;?
     Route: 048
     Dates: start: 20200507, end: 202202
  2. VERZENIO [Suspect]
     Active Substance: ABEMACICLIB
     Indication: Metastases to lymph nodes
  3. VERZENIO [Suspect]
     Active Substance: ABEMACICLIB
     Indication: Hepatic cancer
  4. VERZENIO [Suspect]
     Active Substance: ABEMACICLIB
     Indication: Hepatobiliary cancer

REACTIONS (1)
  - Drug ineffective [None]
